FAERS Safety Report 21044980 (Version 4)
Quarter: 2023Q1

REPORT INFORMATION
  Report Type: Spontaneous
  Country: DE (occurrence: DE)
  Receive Date: 20220705
  Receipt Date: 20230124
  Transmission Date: 20230418
  Serious: Yes (Hospitalization, Other)
  Sender: FDA-Public Use
  Company Number: DE-GLAXOSMITHKLINE-DE2019EME156090

PATIENT
  Sex: Female
  Weight: 14 kg

DRUGS (11)
  1. VALPROIC ACID [Suspect]
     Active Substance: VALPROIC ACID
     Indication: Seizure
     Dosage: UNK
     Route: 065
  2. INFANRIX HEXA [Suspect]
     Active Substance: DIPHTHERIA AND TETANUS TOXOIDS AND ACELLULAR PERTUSSIS ADSORBED, INACTIVATED POLIOVIRUS AND HAEMOPHI
     Indication: Prophylaxis
     Dosage: UNK, INITIATED-22-MAR-2018
     Route: 065
     Dates: start: 20180322
  3. INFANRIX HEXA [Suspect]
     Active Substance: DIPHTHERIA AND TETANUS TOXOIDS AND ACELLULAR PERTUSSIS ADSORBED, INACTIVATED POLIOVIRUS AND HAEMOPHI
     Dosage: UNK, INITIATED-08-JUN-2017
     Route: 065
     Dates: start: 20170608
  4. PREVNAR 13 [Suspect]
     Active Substance: PNEUMOCOCCAL 13-VALENT CONJUGATE VACCINE
     Indication: Prophylaxis
     Dosage: UNK, INITIATED-22-MAR-2018
     Route: 065
     Dates: start: 20180322
  5. PREVNAR 13 [Suspect]
     Active Substance: PNEUMOCOCCAL 13-VALENT CONJUGATE VACCINE
     Dosage: UNK
     Route: 065
  6. PRIORIX [Suspect]
     Active Substance: MEASLES-MUMPS-RUBELLA VIRUS VACCINE
     Indication: Prophylaxis
     Dosage: UNK, INITIATED-18-JAN-2018
     Route: 065
     Dates: start: 20180118
  7. PRIORIX [Suspect]
     Active Substance: MEASLES-MUMPS-RUBELLA VIRUS VACCINE
     Dosage: UNK, INITIATED-25-JAN-2019
     Route: 065
     Dates: start: 20190125
  8. NEISVAC-C [Suspect]
     Active Substance: MENINGOCOCCAL POLYSACCHARIDE VACCINE C
     Indication: Prophylaxis
     Dosage: 0.01 MG, INITIATED-22-FEB-2018
     Route: 030
     Dates: start: 20180222
  9. VIGABATRIN [Suspect]
     Active Substance: VIGABATRIN
     Indication: Epilepsy
     Dosage: UNK
     Route: 065
     Dates: end: 201907
  10. VARILRIX [Suspect]
     Active Substance: VARICELLA-ZOSTER VIRUS STRAIN OKA/MERCK LIVE ANTIGEN
     Indication: Prophylaxis
     Dosage: UNK, INITIATED-17-JAN-2018
     Route: 065
     Dates: start: 20180117
  11. VARILRIX [Suspect]
     Active Substance: VARICELLA-ZOSTER VIRUS STRAIN OKA/MERCK LIVE ANTIGEN
     Dosage: UNK, INITIATED-25-JAN-2019
     Route: 065
     Dates: start: 20190125

REACTIONS (46)
  - Loss of consciousness [Unknown]
  - Epilepsy [Recovered/Resolved]
  - Partial seizures [Recovered/Resolved]
  - Autism spectrum disorder [Unknown]
  - Fear [Unknown]
  - Muscle spasms [Unknown]
  - Strabismus [Unknown]
  - Feeling abnormal [Unknown]
  - Eye movement disorder [Recovered/Resolved]
  - Spinal instability [Unknown]
  - Restlessness [Not Recovered/Not Resolved]
  - Dermatitis atopic [Unknown]
  - Anal sphincter atony [Recovered/Resolved]
  - Stereotypy [Unknown]
  - Speech disorder developmental [Unknown]
  - Blepharospasm [Unknown]
  - Crying [Unknown]
  - Staring [Recovered/Resolved]
  - Spinal pain [Unknown]
  - Posture abnormal [Unknown]
  - Balance disorder [Recovered/Resolved]
  - Anxiety [Unknown]
  - Astigmatism [Unknown]
  - Hypotonia [Unknown]
  - Muscle rigidity [Not Recovered/Not Resolved]
  - Visual field defect [Not Recovered/Not Resolved]
  - Screaming [Recovered/Resolved]
  - Moaning [Recovered/Resolved]
  - Skin infection [Unknown]
  - Movement disorder [Recovered/Resolved]
  - Vaginal infection [Unknown]
  - Infection [Unknown]
  - Pain [Unknown]
  - Insomnia [Unknown]
  - Sleep disorder [Unknown]
  - Gastroenteritis [Unknown]
  - Irritability [Unknown]
  - Language disorder [Unknown]
  - Fatigue [Recovered/Resolved]
  - Abnormal behaviour [Unknown]
  - Somnolence [Unknown]
  - Pyrexia [Recovered/Resolved]
  - Developmental delay [Not Recovered/Not Resolved]
  - Constipation [Unknown]
  - Inappropriate schedule of product administration [Unknown]
  - Gene mutation [Unknown]

NARRATIVE: CASE EVENT DATE: 20170720
